FAERS Safety Report 23425494 (Version 2)
Quarter: 2024Q1

REPORT INFORMATION
  Report Type: Spontaneous
  Country: DE (occurrence: DE)
  Receive Date: 20240122
  Receipt Date: 20240205
  Transmission Date: 20240410
  Serious: Yes (Other)
  Sender: FDA-Public Use
  Company Number: None

PATIENT
  Age: 77 Year
  Sex: Female
  Weight: 80 kg

DRUGS (9)
  1. OLANZAPINE [Interacting]
     Active Substance: OLANZAPINE
     Indication: Delusional disorder, unspecified type
     Dosage: DAILY DOSE: 15 MILLIGRAM
     Route: 048
  2. OLANZAPINE [Interacting]
     Active Substance: OLANZAPINE
     Indication: Delusional disorder, unspecified type
     Dosage: DAILY DOSE: 10 MILLIGRAM
  3. NICOTINE [Interacting]
     Active Substance: NICOTINE
     Indication: Withdrawal syndrome
  4. AMISULPRIDE [Interacting]
     Active Substance: AMISULPRIDE
     Indication: Delusional disorder, unspecified type
     Dosage: BID?DAILY DOSE: 400 MILLIGRAM
     Route: 048
  5. RISPERIDONE [Interacting]
     Active Substance: RISPERIDONE
     Indication: Delusional disorder, unspecified type
  6. AMPICILLIN SODIUM\SULBACTAM SODIUM [Concomitant]
     Active Substance: AMPICILLIN SODIUM\SULBACTAM SODIUM
     Indication: Pneumonia
  7. RIVASTIGMINE [Concomitant]
     Active Substance: RIVASTIGMINE
     Indication: Product used for unknown indication
     Dosage: DAILY DOSE: 10 MILLIGRAM
     Route: 062
  8. ATORVASTATIN [Concomitant]
     Active Substance: ATORVASTATIN
     Indication: Product used for unknown indication
     Dosage: DAILY DOSE: 10 MILLIGRAM
     Route: 048
  9. OXYGEN [Concomitant]
     Active Substance: OXYGEN
     Indication: Pneumonia

REACTIONS (7)
  - Electrocardiogram QT prolonged [Unknown]
  - Drug interaction [Unknown]
  - Hypotonia [Unknown]
  - Antipsychotic drug level increased [Unknown]
  - Tobacco interaction [Unknown]
  - Somnolence [Unknown]
  - Overdose [Unknown]
